FAERS Safety Report 4801415-X (Version None)
Quarter: 2005Q4

REPORT INFORMATION
  Report Type: 
  Country: None (occurrence: None)
  Receive Date: 20051018
  Receipt Date: 20051006
  Transmission Date: 20060501
  Serious: Yes (Other)
  Sender: FDA-Public Use
  Company Number: CH-JNJFOC-20051001326

PATIENT
  Sex: Male

DRUGS (4)
  1. HALDOL [Suspect]
     Indication: ACUTE PSYCHOSIS
     Dosage: AT 10:30 P.M.
     Route: 048
  2. TEMESTA [Concomitant]
     Indication: ACUTE PSYCHOSIS
     Dosage: 25-SEP-2005 AT 10:10 PM AND AGAIN AT 03:00 AM ON 26-SEP-2005
     Route: 048
  3. TEMESTA [Concomitant]
     Dosage: AT 8:15 AM
     Route: 042
  4. CLOPIXOL ACUTARD [Concomitant]
     Indication: ACUTE PSYCHOSIS
     Dosage: 150/3 MG AT 8:15 A.M
     Route: 030

REACTIONS (2)
  - RESPIRATORY DEPRESSION [None]
  - SEDATION [None]
